FAERS Safety Report 4896098-7 (Version None)
Quarter: 2005Q4

REPORT INFORMATION
  Report Type: 
  Country: None (occurrence: None)
  Receive Date: 20051220
  Receipt Date: 20050928
  Transmission Date: 20060501
  Serious: Yes (Hospitalization)
  Sender: FDA-Public Use
  Company Number: US143211

PATIENT
  Age: 42 Year
  Sex: Male
  Weight: 97.6 kg

DRUGS (6)
  1. ENBREL [Suspect]
     Indication: PSORIASIS
     Dosage: 50 MG, 1 IN 1 WEEKS, SC
     Route: 058
     Dates: start: 20040929, end: 20050719
  2. LITHIUM [Concomitant]
  3. RISPERDAL [Concomitant]
  4. VALPROATE SODIUM [Concomitant]
  5. VENLAFAXINE HCL [Concomitant]
  6. TELMISARTAN [Concomitant]

REACTIONS (5)
  - BLOOD PRESSURE INCREASED [None]
  - CONDITION AGGRAVATED [None]
  - DEEP VEIN THROMBOSIS [None]
  - INTERTRIGO CANDIDA [None]
  - PSORIASIS [None]
